FAERS Safety Report 5545418-9 (Version None)
Quarter: 2007Q4

REPORT INFORMATION
  Report Type: 
  Country: None (occurrence: None)
  Receive Date: 20071126
  Receipt Date: 20070419
  Transmission Date: 20080405
  Serious: Yes (Other)
  Sender: FDA-Public Use
  Company Number: 2007BH003418

PATIENT
  Age: 14 Year
  Sex: Male

DRUGS (1)
  1. DIANEAL [Suspect]
     Indication: RENAL FAILURE CHRONIC
     Dosage: 5 L; IP
     Route: 033

REACTIONS (3)
  - CULTURE POSITIVE [None]
  - PYREXIA [None]
  - RASH [None]
